FAERS Safety Report 5300261-0 (Version None)
Quarter: 2007Q2

REPORT INFORMATION
  Report Type: 
  Country: None (occurrence: None)
  Receive Date: 20070418
  Receipt Date: 20070409
  Transmission Date: 20071010
  Serious: Yes (Other)
  Sender: FDA-Public Use
  Company Number: US-JNJFOC-20070205845

PATIENT
  Sex: Female

DRUGS (1)
  1. INVEGA [Suspect]
     Indication: SCHIZOPHRENIA
     Dosage: 1 TABLET (UNSPECIFIED DOSE)
     Route: 048

REACTIONS (1)
  - HYPERSENSITIVITY [None]
